FAERS Safety Report 5447931-1 (Version None)
Quarter: 2007Q3

REPORT INFORMATION
  Report Type: 
  Country: None (occurrence: None)
  Receive Date: 20070910
  Receipt Date: 20070829
  Transmission Date: 20080115
  Serious: Yes (Disabling)
  Sender: FDA-Public Use
  Company Number: GB-PFIZER INC-2007072495

PATIENT
  Age: 65 Year

DRUGS (4)
  1. LINEZOLID [Suspect]
     Indication: BRONCHIECTASIS
     Route: 042
  2. BISOPROLOL [Concomitant]
     Route: 048
  3. PERINDOPRIL ERBUMINE [Concomitant]
     Route: 048
  4. SPIRONOLACTONE [Concomitant]
     Route: 048

REACTIONS (2)
  - PAIN [None]
  - TREMOR [None]
